FAERS Safety Report 7709365-6 (Version None)
Quarter: 2011Q3

REPORT INFORMATION
  Report Type: 
  Country: None (occurrence: None)
  Receive Date: 20110825
  Receipt Date: 20110819
  Transmission Date: 20111222
  Serious: Yes (Hospitalization)
  Sender: FDA-Public Use
  Company Number: FR-MILLENNIUM PHARMACEUTICALS, INC.-2011-00900

PATIENT

DRUGS (10)
  1. ONDANSETRON [Concomitant]
  2. DOXORUBICIN HCL [Suspect]
     Indication: MULTIPLE MYELOMA
     Dosage: 60 MG, CYCLIC
     Route: 042
     Dates: start: 20101213, end: 20110124
  3. PLAVIX [Concomitant]
     Indication: ARTERIOSCLEROSIS
     Dosage: UNK
     Dates: start: 20000101
  4. VELCADE [Suspect]
     Indication: MULTIPLE MYELOMA
     Dosage: 2 MG, CYCLIC
     Route: 042
     Dates: start: 20101211
  5. VELCADE [Suspect]
     Dosage: UNK
     Route: 042
     Dates: start: 20101231, end: 20110110
  6. DEXAMETHASONE [Concomitant]
  7. BISOPROLOL FUMARATE [Concomitant]
     Indication: HYPERTENSION
     Dosage: UNK
     Dates: start: 20000101
  8. NEXIUM [Concomitant]
  9. VELCADE [Suspect]
     Dosage: UNK
     Route: 042
     Dates: start: 20110121, end: 20110121
  10. LYRICA [Concomitant]
     Indication: NEUROPATHY PERIPHERAL
     Dosage: UNK
     Dates: start: 20110101

REACTIONS (2)
  - URTICARIA [None]
  - PALMAR-PLANTAR ERYTHRODYSAESTHESIA SYNDROME [None]
